FAERS Safety Report 12925079 (Version 4)
Quarter: 2017Q1

REPORT INFORMATION
  Report Type: Report from Study
  Country: US (occurrence: US)
  Receive Date: 20161108
  Receipt Date: 20170202
  Transmission Date: 20170428
  Serious: Yes (Hospitalization)
  Sender: FDA-Public Use
  Company Number: US-ALLERGAN-1675236US

PATIENT
  Sex: Female

DRUGS (12)
  1. BOTULINUM TOXIN TYPE A - GENERAL (9060X) [Suspect]
     Active Substance: BOTULINUM TOXIN TYPE A
     Dosage: 125 UNITS, SINGLE
     Route: 030
     Dates: start: 20161024, end: 20161024
  2. BOTULINUM TOXIN TYPE A - GENERAL (9060X) [Suspect]
     Active Substance: BOTULINUM TOXIN TYPE A
     Dosage: 10 UNITS, SINGLE
     Route: 030
     Dates: start: 20161024, end: 20161024
  3. BOTULINUM TOXIN TYPE A - GENERAL (9060X) [Suspect]
     Active Substance: BOTULINUM TOXIN TYPE A
     Dosage: 40 UNITS, SINGLE
     Route: 030
     Dates: start: 20161024, end: 20161024
  4. BOTULINUM TOXIN TYPE A - GENERAL (9060X) [Suspect]
     Active Substance: BOTULINUM TOXIN TYPE A
     Dosage: 45 UNITS, SINGLE
     Route: 030
     Dates: start: 20161024, end: 20161024
  5. BOTULINUM TOXIN TYPE A - GENERAL (9060X) [Suspect]
     Active Substance: BOTULINUM TOXIN TYPE A
     Dosage: 75 UNITS, SINGLE
     Route: 030
     Dates: start: 20161024, end: 20161024
  6. BOTULINUM TOXIN TYPE A - GENERAL (9060X) [Suspect]
     Active Substance: BOTULINUM TOXIN TYPE A
     Dosage: 35 UNITS, SINGLE
     Route: 030
     Dates: start: 20161024, end: 20161024
  7. BOTULINUM TOXIN TYPE A - GENERAL (9060X) [Suspect]
     Active Substance: BOTULINUM TOXIN TYPE A
     Dosage: 20 UNITS, SINGLE
     Route: 030
     Dates: start: 20161024, end: 20161024
  8. BOTULINUM TOXIN TYPE A - GENERAL (9060X) [Suspect]
     Active Substance: BOTULINUM TOXIN TYPE A
     Dosage: 40 UNITS, SINGLE
     Route: 030
     Dates: start: 20161024, end: 20161024
  9. BOTULINUM TOXIN TYPE A - GENERAL (9060X) [Suspect]
     Active Substance: BOTULINUM TOXIN TYPE A
     Indication: MUSCLE SPASTICITY
     Dosage: 20 UNITS, SINGLE
     Route: 030
     Dates: start: 20161024, end: 20161024
  10. BOTULINUM TOXIN TYPE A - GENERAL (9060X) [Suspect]
     Active Substance: BOTULINUM TOXIN TYPE A
     Dosage: 40 UNITS, SINGLE
     Route: 030
     Dates: start: 20161024, end: 20161024
  11. BOTULINUM TOXIN TYPE A - GENERAL (9060X) [Suspect]
     Active Substance: BOTULINUM TOXIN TYPE A
     Dosage: 25 UNITS, SINGLE
     Route: 030
     Dates: start: 20161024, end: 20161024
  12. BOTULINUM TOXIN TYPE A - GENERAL (9060X) [Suspect]
     Active Substance: BOTULINUM TOXIN TYPE A
     Dosage: 25 UNITS, SINGLE
     Route: 030
     Dates: start: 20161024, end: 20161024

REACTIONS (3)
  - Proctitis [Recovered/Resolved]
  - Colitis [Recovered/Resolved]
  - Urinary tract infection [Recovered/Resolved]

NARRATIVE: CASE EVENT DATE: 20161030
